FAERS Safety Report 25160556 (Version 1)
Quarter: 2025Q2

REPORT INFORMATION
  Report Type: Spontaneous
  Country: US (occurrence: None)
  Receive Date: 20250404
  Receipt Date: 20250404
  Transmission Date: 20250716
  Serious: Yes (Other)
  Sender: ACS DOBFAR
  Company Number: US-ACS-20250183

PATIENT
  Age: 86 Year
  Sex: Female
  Weight: 117.9 kg

DRUGS (1)
  1. MEROPENEM [Suspect]
     Active Substance: MEROPENEM
     Indication: Urinary tract infection
     Route: 040

REACTIONS (2)
  - Urinary incontinence [Unknown]
  - Off label use [Unknown]
